FAERS Safety Report 15542109 (Version 1)
Quarter: 2018Q4

REPORT INFORMATION
  Report Type: Spontaneous
  Country: US (occurrence: US)
  Receive Date: 20181023
  Receipt Date: 20181023
  Transmission Date: 20190205
  Serious: No
  Sender: FDA-Public Use
  Company Number: US-BAUSCH-BL-2018-015895

PATIENT
  Age: 72 Year
  Sex: Male
  Weight: 74.91 kg

DRUGS (2)
  1. ZIRGAN [Suspect]
     Active Substance: GANCICLOVIR
     Indication: EYE INFECTION
     Dosage: TOTAL 4 DOSES
     Route: 047
     Dates: start: 20180525, end: 20180526
  2. MOXIFLOXACIN. [Concomitant]
     Active Substance: MOXIFLOXACIN
     Indication: EYE INFECTION
     Route: 047
     Dates: start: 201805

REACTIONS (5)
  - Ocular hyperaemia [Recovered/Resolved]
  - Eye irritation [Unknown]
  - Incorrect dose administered [Recovered/Resolved]
  - Eye pain [Recovered/Resolved]
  - Insomnia [Unknown]

NARRATIVE: CASE EVENT DATE: 201805
